FAERS Safety Report 9201836 (Version 1)
Quarter: 2013Q2

REPORT INFORMATION
  Report Type: Spontaneous
  Country: FR (occurrence: FR)
  Receive Date: 20130401
  Receipt Date: 20130401
  Transmission Date: 20140414
  Serious: Yes (Hospitalization)
  Sender: FDA-Public Use
  Company Number: FR-ROCHE-1208581

PATIENT
  Age: 76 Year
  Sex: Male

DRUGS (28)
  1. MABTHERA [Suspect]
     Indication: NON-HODGKIN^S LYMPHOMA
     Route: 041
     Dates: start: 20121228, end: 20121228
  2. MABTHERA [Suspect]
     Route: 065
     Dates: start: 201110
  3. MABTHERA [Suspect]
     Route: 065
     Dates: start: 20121210
  4. GEMCITABINE [Suspect]
     Indication: NON-HODGKIN^S LYMPHOMA
     Route: 042
     Dates: start: 20121227, end: 20121228
  5. GEMCITABINE [Suspect]
     Route: 065
     Dates: start: 20121210
  6. OXALIPLATIN [Suspect]
     Indication: NON-HODGKIN^S LYMPHOMA
     Route: 042
     Dates: start: 20121228, end: 20121228
  7. OXALIPLATIN [Suspect]
     Route: 065
     Dates: start: 20121210
  8. CYCLOPHOSPHAMIDE [Concomitant]
     Route: 065
     Dates: start: 201110, end: 201203
  9. DOXORUBICIN [Concomitant]
     Route: 065
     Dates: start: 201110, end: 201203
  10. VINCRISTINE [Concomitant]
     Route: 065
     Dates: start: 201110, end: 201203
  11. PREDNISONE [Concomitant]
     Route: 065
     Dates: start: 201110, end: 201203
  12. ARANESP [Concomitant]
     Route: 065
     Dates: start: 20130130
  13. NEULASTA [Concomitant]
     Route: 065
     Dates: start: 20130130
  14. EUPANTOL [Concomitant]
     Route: 065
  15. TAHOR [Concomitant]
     Route: 065
  16. XANAX [Concomitant]
     Route: 065
  17. LASILIX [Concomitant]
     Route: 065
  18. BACTRIM FORTE [Concomitant]
     Route: 065
  19. LOXEN [Concomitant]
     Route: 065
  20. ZELITREX [Concomitant]
     Route: 065
  21. CORTANCYL [Concomitant]
     Route: 065
  22. TENORMINE [Concomitant]
     Route: 065
  23. EFFEXOR [Concomitant]
     Route: 065
  24. SPASFON [Concomitant]
     Route: 065
  25. INNOHEP [Concomitant]
     Route: 065
  26. TAZOCILLINE [Concomitant]
  27. VANCOMYCINE [Concomitant]
  28. ALLOPURINOL [Concomitant]

REACTIONS (3)
  - Cholestasis [Not Recovered/Not Resolved]
  - Tumour lysis syndrome [Not Recovered/Not Resolved]
  - Renal failure acute [Not Recovered/Not Resolved]
